FAERS Safety Report 23843264 (Version 1)
Quarter: 2024Q2

REPORT INFORMATION
  Report Type: Spontaneous
  Country: CA (occurrence: CA)
  Receive Date: 20240510
  Receipt Date: 20240510
  Transmission Date: 20240716
  Serious: Yes (Other)
  Sender: FDA-Public Use
  Company Number: CA-TEVA-VS-3197267

PATIENT
  Age: 30 Year
  Sex: Female

DRUGS (5)
  1. VENLAFAXINE HYDROCHLORIDE [Suspect]
     Active Substance: VENLAFAXINE HYDROCHLORIDE
     Indication: Anxiety
     Dosage: CAPSULE, EXTENDED RELEASE
     Route: 065
  2. VENLAFAXINE HYDROCHLORIDE [Suspect]
     Active Substance: VENLAFAXINE HYDROCHLORIDE
     Indication: Anxiety
     Dosage: CAPSULE, EXTENDED RELEASE
     Route: 065
  3. LATUDA [Concomitant]
     Active Substance: LURASIDONE HYDROCHLORIDE
     Indication: Product used for unknown indication
     Route: 065
  4. ACETAMINOPHEN\TRAMADOL [Concomitant]
     Active Substance: ACETAMINOPHEN\TRAMADOL
     Indication: Product used for unknown indication
     Route: 065
  5. TRAZODONE [Concomitant]
     Active Substance: TRAZODONE HYDROCHLORIDE
     Indication: Product used for unknown indication
     Route: 065

REACTIONS (16)
  - Anxiety [Unknown]
  - Cold sweat [Unknown]
  - Body temperature fluctuation [Unknown]
  - Emotional distress [Unknown]
  - Ileostomy [Unknown]
  - Insomnia [Unknown]
  - Insomnia [Unknown]
  - Nausea [Unknown]
  - Product residue present [Unknown]
  - Colon cancer [Unknown]
  - Depressed mood [Unknown]
  - Depressed mood [Unknown]
  - Depression [Unknown]
  - Product residue present [Unknown]
  - Surgery [Unknown]
  - Wrong technique in product usage process [Unknown]
